FAERS Safety Report 16080186 (Version 1)
Quarter: 2019Q1

REPORT INFORMATION
  Report Type: Spontaneous
  Country: US (occurrence: US)
  Receive Date: 20190315
  Receipt Date: 20190315
  Transmission Date: 20190418
  Serious: Yes (Other)
  Sender: FDA-Public Use
  Company Number: PHEH2019US011052

PATIENT

DRUGS (3)
  1. IBRANCE [Suspect]
     Active Substance: PALBOCICLIB
     Indication: BREAST CANCER METASTATIC
  2. LETROZOLE. [Suspect]
     Active Substance: LETROZOLE
     Indication: BREAST CANCER METASTATIC
     Dosage: UNK
     Route: 065
     Dates: start: 201802
  3. IBRANCE [Suspect]
     Active Substance: PALBOCICLIB
     Indication: BREAST CANCER FEMALE
     Dosage: 1 DF, QD
     Route: 048
     Dates: start: 201802

REACTIONS (12)
  - Dyspnoea [Unknown]
  - Arthralgia [Unknown]
  - Food craving [Unknown]
  - Fatigue [Unknown]
  - Muscle spasms [Unknown]
  - Nausea [Unknown]
  - Headache [Unknown]
  - Increased appetite [Unknown]
  - Abdominal pain upper [Unknown]
  - Asthenia [Unknown]
  - Neuropathy peripheral [Unknown]
  - Weight decreased [Recovering/Resolving]
